FAERS Safety Report 4446598-9 (Version None)
Quarter: 2004Q3

REPORT INFORMATION
  Report Type: 
  Country: None (occurrence: None)
  Receive Date: 20040908
  Receipt Date: 20040827
  Transmission Date: 20050211
  Serious: Yes (Hospitalization)
  Sender: FDA-Public Use
  Company Number: 2004228979US

PATIENT
  Age: 58 Year
  Sex: Male
  Weight: 90.2 kg

DRUGS (8)
  1. CELEBREX [Suspect]
     Indication: SQUAMOUS CELL CARCINOMA
     Dosage: 400 MG, BID, OTHER
     Dates: start: 20040706, end: 20040810
  2. CARBOPLATIN [Suspect]
     Indication: SQUAMOUS CELL CARCINOMA
     Dosage: CYCLIC
     Dates: start: 20040713, end: 20040810
  3. PACLITAXEL [Suspect]
     Indication: SQUAMOUS CELL CARCINOMA
     Dosage: 30 MG/M2, CYCLIC , IV
     Route: 042
     Dates: start: 20040713
  4. CLINICAL TRIAL PROCEDURE(CLINICAL TRIAL PROCEDURE) [Suspect]
     Indication: SQUAMOUS CELL CARCINOMA
  5. MAGIC MOUTHWASH [Concomitant]
  6. LORTAB [Concomitant]
  7. ATIVAN [Concomitant]
  8. DURAGESIC [Concomitant]

REACTIONS (8)
  - DEHYDRATION [None]
  - HAEMORRHAGE [None]
  - HYPERTENSION [None]
  - HYPOTENSION [None]
  - MARKEDLY REDUCED DIETARY INTAKE [None]
  - MUCOUS MEMBRANE DISORDER [None]
  - PYREXIA [None]
  - RADIATION SKIN INJURY [None]
